FAERS Safety Report 10149117 (Version 4)
Quarter: 2014Q2

REPORT INFORMATION
  Report Type: Report from Study
  Country: US (occurrence: US)
  Receive Date: 20140502
  Receipt Date: 20140605
  Transmission Date: 20141212
  Serious: Yes (Hospitalization)
  Sender: FDA-Public Use
  Company Number: US-CELGENEUS-163-21880-14034125

PATIENT
  Age: 30 Year
  Sex: Female
  Weight: 67.6 kg

DRUGS (24)
  1. REVLIMID [Suspect]
     Indication: MYCOSIS FUNGOIDES
     Dosage: 10 MILLIGRAM
     Route: 048
     Dates: start: 20140219, end: 20140302
  2. REVLIMID [Suspect]
     Dosage: 5 MILLIGRAM
     Route: 048
     Dates: start: 20140320, end: 20140411
  3. EVEROLIMUS [Suspect]
     Indication: MYCOSIS FUNGOIDES
     Dosage: 5 MILLIGRAM
     Route: 048
     Dates: start: 20140219, end: 20140302
  4. EVEROLIMUS [Suspect]
     Dosage: 5 MILLIGRAM
     Route: 048
     Dates: start: 20140320, end: 20140411
  5. PREDNISONE [Suspect]
     Indication: PRODUCT USED FOR UNKNOWN INDICATION
     Dosage: 10 MILLIGRAM
     Route: 048
     Dates: start: 20140302
  6. LORTAB [Concomitant]
     Indication: PRODUCT USED FOR UNKNOWN INDICATION
     Dosage: 5/325
     Route: 048
     Dates: start: 2014
  7. AMBIEN [Concomitant]
     Indication: PRODUCT USED FOR UNKNOWN INDICATION
     Dosage: 5 MILLIGRAM
     Route: 048
     Dates: start: 2014
  8. XANAX [Concomitant]
     Indication: ANXIETY
     Dosage: .75 MILLIGRAM
     Route: 048
     Dates: start: 2014
  9. COMPAZINE [Concomitant]
     Indication: NAUSEA
     Dosage: 40 MILLIGRAM
     Route: 048
     Dates: start: 2014
  10. COMPAZINE [Concomitant]
     Indication: VOMITING
     Route: 065
  11. NEURONTIN [Concomitant]
     Indication: PRODUCT USED FOR UNKNOWN INDICATION
     Dosage: 1200 MILLIGRAM
     Route: 048
     Dates: start: 2014
  12. ZOVIRAX [Concomitant]
     Indication: PRODUCT USED FOR UNKNOWN INDICATION
     Dosage: 800 MILLIGRAM
     Route: 048
     Dates: start: 2014
  13. WELLBUTRIN [Concomitant]
     Indication: PRODUCT USED FOR UNKNOWN INDICATION
     Dosage: 75 MILLIGRAM
     Route: 048
     Dates: start: 2014
  14. CELEXA [Concomitant]
     Indication: PRODUCT USED FOR UNKNOWN INDICATION
     Dosage: 40 MILLIGRAM
     Route: 048
     Dates: start: 2014
  15. OXYCONTIN [Concomitant]
     Indication: PRODUCT USED FOR UNKNOWN INDICATION
     Dosage: 20 MILLIGRAM
     Route: 048
  16. OXYCODONE [Concomitant]
     Indication: PRODUCT USED FOR UNKNOWN INDICATION
     Route: 048
  17. OXYCODONE [Concomitant]
     Route: 048
  18. LORAZEPAM [Concomitant]
     Indication: NAUSEA
     Dosage: 3 MILLIGRAM
     Route: 048
  19. LORAZEPAM [Concomitant]
     Indication: VOMITING
     Route: 065
  20. PHILLIPS COLON HEALTH [Concomitant]
     Indication: PRODUCT USED FOR UNKNOWN INDICATION
     Dosage: 1 CAPSULE
     Route: 048
  21. ONDANSETRON [Concomitant]
     Indication: NAUSEA
     Dosage: 12 MILLIGRAM
     Route: 048
  22. VELCADE [Concomitant]
     Indication: PRODUCT USED FOR UNKNOWN INDICATION
     Route: 065
  23. TACROLIMUS [Concomitant]
     Indication: PRODUCT USED FOR UNKNOWN INDICATION
     Route: 065
  24. METHOTREXATE [Concomitant]
     Indication: PRODUCT USED FOR UNKNOWN INDICATION
     Route: 065

REACTIONS (7)
  - Hypoalbuminaemia [Unknown]
  - Generalised oedema [Recovered/Resolved]
  - Electrocardiogram QT prolonged [Recovered/Resolved]
  - Pneumocystis jirovecii pneumonia [Recovered/Resolved]
  - Diarrhoea [Recovered/Resolved]
  - Pancytopenia [Not Recovered/Not Resolved]
  - Viral upper respiratory tract infection [Recovering/Resolving]
